FAERS Safety Report 4307352-1 (Version None)
Quarter: 2004Q1

REPORT INFORMATION
  Report Type: 
  Country: None (occurrence: None)
  Receive Date: 20040226
  Receipt Date: 20040213
  Transmission Date: 20041129
  Serious: Yes (Other)
  Sender: FDA-Public Use
  Company Number: 2004010117

PATIENT
  Age: 63 Year
  Sex: Female
  Weight: 56.246 kg

DRUGS (8)
  1. LIPITOR [Suspect]
     Indication: BLOOD CHOLESTEROL INCREASED
     Dosage: 10 MG (DAILY), ORAL
     Route: 048
  2. EZETIMIBE (EZETIMIBE) [Suspect]
     Indication: BLOOD CHOLESTEROL INCREASED
  3. FLUVASTATIN (FLUVASTATIN) [Suspect]
     Indication: BLOOD CHOLESTEROL INCREASED
  4. PRAVASTATIN SODIUM [Suspect]
     Indication: LOW DENSITY LIPOPROTEIN
  5. ROSUVASTATIN (ROSUVASTATIN) [Suspect]
     Indication: BLOOD CHOLESTEROL INCREASED
     Dates: end: 20040212
  6. ESOMEPRAZOLE (ESOMEPRAZOLE) [Concomitant]
  7. LEVOTHYROXINE SODIUM [Concomitant]
  8. METOPROLOL (METOPROLOL) [Concomitant]

REACTIONS (7)
  - ARTHRALGIA [None]
  - BACK PAIN [None]
  - FATIGUE [None]
  - NECK PAIN [None]
  - PAROTIDECTOMY [None]
  - URTICARIA [None]
  - VOMITING [None]
